FAERS Safety Report 5487205-6 (Version None)
Quarter: 2007Q3

REPORT INFORMATION
  Report Type: 
  Country: None (occurrence: None)
  Receive Date: 20070925
  Receipt Date: 20070621
  Transmission Date: 20080115
  Serious: No
  Sender: FDA-Public Use
  Company Number: 2007US001440

PATIENT
  Age: 80 Year
  Sex: Female

DRUGS (10)
  1. VESICARE [Suspect]
     Indication: POLLAKIURIA
     Dosage: 5 MG, UID/QD, ORAL
     Route: 048
     Dates: start: 20070620, end: 20070627
  2. LOPRESSOR [Concomitant]
  3. THYROXIN (LEVOTHYROXINE ODIUM) [Concomitant]
  4. ASPIRIN [Concomitant]
  5. MULTIVITAMIN [Concomitant]
  6. SONATA [Concomitant]
  7. DARVOCET (DEXTROPROPOXYPHENE NAPSILATE) [Concomitant]
  8. PEPCID [Concomitant]
  9. LASIX [Concomitant]
  10. LIPITOR [Concomitant]

REACTIONS (3)
  - POLLAKIURIA [None]
  - URINARY HESITATION [None]
  - URINARY RETENTION [None]
